FAERS Safety Report 9567281 (Version 1)
Quarter: 2013Q3

REPORT INFORMATION
  Report Type: Spontaneous
  Country: US (occurrence: US)
  Receive Date: 20130930
  Receipt Date: 20130930
  Transmission Date: 20140515
  Serious: No
  Sender: FDA-Public Use
  Company Number: US-AMGEN-USASP2012061903

PATIENT
  Age: 48 Year
  Sex: Male
  Weight: 97 kg

DRUGS (9)
  1. ENBREL [Suspect]
     Indication: PSORIATIC ARTHROPATHY
     Dosage: 50 MG, QWK
     Route: 058
  2. ENBREL [Suspect]
     Indication: PSORIASIS
  3. HYDROCODONE/APAP [Concomitant]
     Dosage: 7.5-500
  4. IBUPROFEN [Concomitant]
     Dosage: 200 MG, UNK
  5. XANAX [Concomitant]
     Dosage: 0.25 MG, UNK
  6. PRILOSEC                           /00661201/ [Concomitant]
     Dosage: 10 MG, UNK
  7. FISH OIL [Concomitant]
     Dosage: UNK
  8. LOVAZA [Concomitant]
     Dosage: 1 G, UNK
  9. TRIPLEX                            /00050502/ [Concomitant]
     Dosage: UNK

REACTIONS (1)
  - Nasopharyngitis [Recovered/Resolved]
